FAERS Safety Report 14691708 (Version 1)
Quarter: 2018Q1

REPORT INFORMATION
  Report Type: Spontaneous
  Country: GB (occurrence: GB)
  Receive Date: 20180329
  Receipt Date: 20180329
  Transmission Date: 20180509
  Serious: Yes (Hospitalization, Other)
  Sender: FDA-Public Use
  Company Number: GB-ABBVIE-18K-167-2302171-00

PATIENT
  Age: 78 Year
  Sex: Male

DRUGS (1)
  1. TESTOGEL [Suspect]
     Active Substance: TESTOSTERONE
     Indication: HYPOGONADISM
     Dosage: 1/2 A SACHET DAILY
     Route: 061

REACTIONS (4)
  - Sepsis [Unknown]
  - Underdose [Unknown]
  - Chronic kidney disease [Unknown]
  - Sedation [Unknown]
